FAERS Safety Report 16790044 (Version 3)
Quarter: 2019Q4

REPORT INFORMATION
  Report Type: Spontaneous
  Country: FR (occurrence: FR)
  Receive Date: 20190910
  Receipt Date: 20191004
  Transmission Date: 20200122
  Serious: Yes (Hospitalization, Other)
  Sender: FDA-Public Use
  Company Number: FR-ASCEND THERAPEUTICS US, LLC-2074238

PATIENT
  Age: 46 Year
  Sex: Female

DRUGS (3)
  1. CYPROTERONE ACETATE?INDICATION FOR USE: ANDROGENIC ALOPECIA, HORMONE R [Suspect]
     Active Substance: CYPROTERONE
     Route: 048
  2. ESTROGEL [Suspect]
     Active Substance: ESTRADIOL
     Indication: HORMONE THERAPY
  3. ESTRADIOL. [Suspect]
     Active Substance: ESTRADIOL

REACTIONS (3)
  - Paraesthesia [Recovered/Resolved]
  - Ischaemic stroke [Recovered/Resolved]
  - Meningioma [Recovered/Resolved]
